FAERS Safety Report 4822983-8 (Version None)
Quarter: 2005Q4

REPORT INFORMATION
  Report Type: 
  Country: None (occurrence: None)
  Receive Date: 20051108
  Receipt Date: 20051031
  Transmission Date: 20060501
  Serious: Yes (Other)
  Sender: FDA-Public Use
  Company Number: US-JNJFOC-20051100703

PATIENT
  Age: 28 Year
  Sex: Female

DRUGS (1)
  1. RISPERDAL [Suspect]
     Dosage: TAKEN AS 0.5 MG IN THE AM AND 1.0 MG IN THE PM
     Route: 048

REACTIONS (1)
  - BREAST CANCER [None]
